FAERS Safety Report 11746378 (Version 1)
Quarter: 2015Q4

REPORT INFORMATION
  Report Type: Spontaneous
  Country: US (occurrence: None)
  Receive Date: 20151116
  Receipt Date: 20151116
  Transmission Date: 20160304
  Serious: Yes (Life-Threatening, Disabling)
  Sender: FDA-Public Use
  Company Number: None

PATIENT
  Age: 82 Year
  Weight: 76.2 kg

DRUGS (11)
  1. AMIODARONE [Concomitant]
     Active Substance: AMIODARONE
  2. METOPROLOL TARTRATE 25MG AUROBINDO [Suspect]
     Active Substance: METOPROLOL TARTRATE
     Indication: PRODUCT USED FOR UNKNOWN INDICATION
     Dosage: 2 PILLS
     Route: 048
  3. NITROGLYCERIN. [Concomitant]
     Active Substance: NITROGLYCERIN
  4. MULTI-VITAMIN [Concomitant]
     Active Substance: .ALPHA.-TOCOPHEROL ACETATE, DL-\ASCORBIC ACID\CYANOCOBALAMIN\FLUORIDE ION\FOLIC ACID\NIACIN\PYRIDOXINE\RIBOFLAVIN\THIAMINE\VITAMIN A\VITAMIN D
  5. ALLOPURINOL. [Concomitant]
     Active Substance: ALLOPURINOL
  6. AMLODIPINE [Concomitant]
     Active Substance: AMLODIPINE BESYLATE
  7. EZETIMIBE. [Concomitant]
     Active Substance: EZETIMIBE
  8. LEVOTHYROXINE-SYNTHROID [Concomitant]
  9. VITAMIN D3 [Concomitant]
     Active Substance: CHOLECALCIFEROL
  10. FUROSEMIDE. [Concomitant]
     Active Substance: FUROSEMIDE
  11. ASPIRIN. [Concomitant]
     Active Substance: ASPIRIN

REACTIONS (6)
  - Back pain [None]
  - Chest discomfort [None]
  - Cardiac failure [None]
  - Fatigue [None]
  - Pulmonary oedema [None]
  - Ventricular tachycardia [None]

NARRATIVE: CASE EVENT DATE: 20140822
